FAERS Safety Report 19966979 (Version 1)
Quarter: 2021Q4

REPORT INFORMATION
  Report Type: Spontaneous
  Country: CN (occurrence: CN)
  Receive Date: 20211018
  Receipt Date: 20211018
  Transmission Date: 20220303
  Serious: Yes (Death, Hospitalization, Other)
  Sender: FDA-Public Use
  Company Number: CN-IPCA LABORATORIES LIMITED-IPC-2021-CN-001765

PATIENT

DRUGS (1)
  1. ALLOPURINOL [Suspect]
     Active Substance: ALLOPURINOL
     Indication: Hyperuricaemia
     Dosage: 0.3 GRAM, QD
     Route: 065

REACTIONS (4)
  - Haemophagocytic lymphohistiocytosis [Fatal]
  - Drug reaction with eosinophilia and systemic symptoms [Fatal]
  - Acute respiratory failure [Fatal]
  - Anuria [Fatal]
